FAERS Safety Report 24694808 (Version 3)
Quarter: 2024Q4

REPORT INFORMATION
  Report Type: Spontaneous
  Country: JP (occurrence: JP)
  Receive Date: 20241204
  Receipt Date: 20241231
  Transmission Date: 20250114
  Serious: Yes (Hospitalization, Other)
  Sender: UCB
  Company Number: JP-UCBJ-CD202411833UCBPHAPROD

PATIENT
  Age: 4 Decade
  Sex: Male

DRUGS (1)
  1. VIMPAT [Suspect]
     Active Substance: LACOSAMIDE
     Indication: Epilepsy
     Dosage: 100 MILLIGRAM, 2X/DAY (BID)
     Route: 048

REACTIONS (5)
  - Epilepsy [Recovered/Resolved]
  - Clavicle fracture [Unknown]
  - Wrist fracture [Unknown]
  - Vomiting [Unknown]
  - Treatment noncompliance [Unknown]
